FAERS Safety Report 20533219 (Version 4)
Quarter: 2022Q2

REPORT INFORMATION
  Report Type: Spontaneous
  Country: TR (occurrence: TR)
  Receive Date: 20220301
  Receipt Date: 20220428
  Transmission Date: 20220721
  Serious: Yes (Hospitalization, Other)
  Sender: FDA-Public Use
  Company Number: TR-SA-2022SA059588

PATIENT
  Age: 58 Year
  Sex: Female

DRUGS (3)
  1. METHOTREXATE [Suspect]
     Active Substance: METHOTREXATE
  2. LEFLUNOMIDE [Suspect]
     Active Substance: LEFLUNOMIDE
  3. XELJANZ [Suspect]
     Active Substance: TOFACITINIB CITRATE
     Indication: Rheumatoid arthritis
     Dosage: 25 MG, BID, 2X/DAY
     Route: 048
     Dates: start: 202109, end: 202112

REACTIONS (7)
  - Haemorrhage [Unknown]
  - Platelet disorder [Unknown]
  - Movement disorder [Unknown]
  - General physical health deterioration [Unknown]
  - Hypertension [Recovered/Resolved]
  - Multiple drug therapy [Unknown]
  - Off label use [Unknown]
